FAERS Safety Report 13763929 (Version 2)
Quarter: 2017Q3

REPORT INFORMATION
  Report Type: Spontaneous
  Country: JP (occurrence: JP)
  Receive Date: 20170718
  Receipt Date: 20170728
  Transmission Date: 20171127
  Serious: Yes (Death, Other)
  Sender: FDA-Public Use
  Company Number: JP-009507513-1707JPN000406J

PATIENT
  Age: 57 Year
  Sex: Male
  Weight: 61 kg

DRUGS (3)
  1. DECADRON [Concomitant]
     Active Substance: DEXAMETHASONE
     Dosage: 4.0 MG, QD
     Route: 048
     Dates: start: 20170429
  2. DECADRON [Concomitant]
     Active Substance: DEXAMETHASONE
     Indication: LUNG ADENOCARCINOMA
     Dosage: 8.0 MG, QD
     Route: 048
     Dates: start: 20170419, end: 20170428
  3. KEYTRUDA [Suspect]
     Active Substance: PEMBROLIZUMAB
     Indication: LUNG ADENOCARCINOMA
     Dosage: 200 MG, Q3W
     Route: 041
     Dates: start: 20170403, end: 20170419

REACTIONS (1)
  - Malignant neoplasm progression [Fatal]

NARRATIVE: CASE EVENT DATE: 20170513
